FAERS Safety Report 4840824-X (Version None)
Quarter: 2005Q4

REPORT INFORMATION
  Report Type: 
  Country: None (occurrence: None)
  Receive Date: 20051130
  Receipt Date: 20050505
  Transmission Date: 20060501
  Serious: No
  Sender: FDA-Public Use
  Company Number: US-BRISTOL-MYERS SQUIBB COMPANY-12957916

PATIENT
  Sex: Female

DRUGS (1)
  1. AVALIDE [Suspect]

REACTIONS (5)
  - DIARRHOEA [None]
  - FLATULENCE [None]
  - FLUSHING [None]
  - OEDEMA [None]
  - PERIPHERAL COLDNESS [None]
